FAERS Safety Report 11867491 (Version 1)
Quarter: 2015Q4

REPORT INFORMATION
  Report Type: Spontaneous
  Country: IT (occurrence: IT)
  Receive Date: 20151224
  Receipt Date: 20151224
  Transmission Date: 20160305
  Serious: Yes (Death, Hospitalization, Other)
  Sender: FDA-Public Use
  Company Number: IT-GLAXOSMITHKLINE-IT2015GSK180427

PATIENT
  Age: 38 Year
  Sex: Female

DRUGS (3)
  1. LAMOTRIGINE. [Suspect]
     Active Substance: LAMOTRIGINE
     Indication: PRODUCT USED FOR UNKNOWN INDICATION
     Dosage: 100 MG, QD
  2. ALPRAZOLAM. [Concomitant]
     Active Substance: ALPRAZOLAM
     Indication: DECREASED APPETITE
     Dosage: UNK
  3. PAROXETINE [Concomitant]
     Active Substance: PAROXETINE\PAROXETINE HYDROCHLORIDE
     Indication: DEPRESSION
     Dosage: UNK

REACTIONS (15)
  - Stupor [Unknown]
  - Acute hepatic failure [Unknown]
  - Coagulation test abnormal [Unknown]
  - White blood cell count decreased [Unknown]
  - Acute respiratory failure [Unknown]
  - Neurological decompensation [Unknown]
  - Insomnia [Unknown]
  - Somnolence [Unknown]
  - Acute kidney injury [Unknown]
  - Coma [Unknown]
  - Rash [Unknown]
  - Hepatic function abnormal [Unknown]
  - Blood urea increased [Unknown]
  - Drug hypersensitivity [Fatal]
  - Blood creatinine increased [Unknown]
